FAERS Safety Report 23817809 (Version 1)
Quarter: 2024Q2

REPORT INFORMATION
  Report Type: Spontaneous
  Country: CN (occurrence: CN)
  Receive Date: 20240506
  Receipt Date: 20240506
  Transmission Date: 20240716
  Serious: Yes (Death, Other)
  Sender: FDA-Public Use
  Company Number: CN-RDY-LIT/CHN/24/0006773

PATIENT
  Age: 57 Year
  Sex: Female

DRUGS (8)
  1. CLOPIDOGREL [Suspect]
     Active Substance: CLOPIDOGREL BISULFATE
     Indication: Platelet aggregation inhibition
     Dosage: ADMINISTERED VIA THE GASTRIC TUBE
     Dates: start: 202307
  2. CLOPIDOGREL [Suspect]
     Active Substance: CLOPIDOGREL BISULFATE
     Dosage: ADMINISTERED VIA THE GASTRIC TUBE
     Dates: start: 202307
  3. CLOPIDOGREL [Suspect]
     Active Substance: CLOPIDOGREL BISULFATE
  4. ASPIRIN [Suspect]
     Active Substance: ASPIRIN
     Indication: Platelet aggregation inhibition
     Dosage: ADMINISTERED VIA THE GASTRIC TUBE
     Dates: start: 202307
  5. ASPIRIN [Suspect]
     Active Substance: ASPIRIN
     Dosage: ADMINISTERED VIA THE GASTRIC TUBE
     Dates: start: 202307
  6. TIROFIBAN [Suspect]
     Active Substance: TIROFIBAN
     Indication: Platelet aggregation inhibition
     Dosage: AT A RATE OF 7 ML/H BASED ON 0.1 ?G/(KG?MIN), AND DISCONTINUED AFTER COMPLETION; AT 1:00 PM,
     Dates: start: 202307
  7. SODIUM CHLORIDE [Suspect]
     Active Substance: SODIUM CHLORIDE
     Indication: Platelet aggregation inhibition
     Dosage: AT A RATE OF 7 ML/H BASED ON 0.1 ?G/(KG?MIN), AND DISCONTINUED AFTER COMPLETION; AT 1:00 PM,
     Dates: start: 202307
  8. FELODIPINE [Concomitant]
     Active Substance: FELODIPINE
     Indication: Hypertension
     Dates: start: 20230717

REACTIONS (4)
  - Respiratory failure [Fatal]
  - Coma [Unknown]
  - Drug ineffective [Unknown]
  - Treatment noncompliance [Unknown]

NARRATIVE: CASE EVENT DATE: 20230701
